FAERS Safety Report 4936712-0 (Version None)
Quarter: 2006Q1

REPORT INFORMATION
  Report Type: 
  Country: None (occurrence: None)
  Receive Date: 20060302
  Receipt Date: 20060214
  Transmission Date: 20060701
  Serious: Yes (Death, Hospitalization)
  Sender: FDA-Public Use
  Company Number: GB200601004131

PATIENT
  Age: 62 Year
  Sex: Female

DRUGS (8)
  1. OLANZAPINE [Suspect]
     Indication: SCHIZOPHRENIA
     Dosage: 15 MG,DAILY (1/D)
     Dates: start: 20030101
  2. AMISULPRIDE [Concomitant]
  3. OMEPRAZOLE [Concomitant]
  4. ZOPICLONE [Concomitant]
  5. SERETIDE (FLUTICASONE PROPIONATE, SALMETEROL) [Concomitant]
  6. TIOTROPIUM BROMIDE [Concomitant]
  7. FUSIDIC ACID [Concomitant]
  8. FLUCLOXACILLIN [Concomitant]

REACTIONS (13)
  - CARDIAC ARREST [None]
  - COMA [None]
  - CYANOSIS [None]
  - HEPATIC FUNCTION ABNORMAL [None]
  - HYPOKALAEMIA [None]
  - HYPOXIC ENCEPHALOPATHY [None]
  - LONG QT SYNDROME [None]
  - LOWER RESPIRATORY TRACT INFECTION [None]
  - MYOCARDIAL ISCHAEMIA [None]
  - PNEUMONIA [None]
  - PULSE ABSENT [None]
  - RENAL IMPAIRMENT [None]
  - STAPHYLOCOCCAL SEPSIS [None]
